FAERS Safety Report 18485418 (Version 6)
Quarter: 2021Q3

REPORT INFORMATION
  Report Type: Report from Study
  Country: US (occurrence: US)
  Receive Date: 20201110
  Receipt Date: 20210927
  Transmission Date: 20211014
  Serious: Yes (Other)
  Sender: FDA-Public Use
  Company Number: US-SA-2020SA315376

PATIENT
  Age: 29 Year
  Sex: Male

DRUGS (4)
  1. AGALSIDASE BETA [Suspect]
     Active Substance: AGALSIDASE BETA
     Indication: FABRY^S DISEASE
     Dosage: 60 MG, QOW
     Route: 042
     Dates: start: 20180417, end: 201804
  2. KEPPRA [Concomitant]
     Active Substance: LEVETIRACETAM
     Dosage: 1000 MG; BID
     Route: 065
  3. AGALSIDASE BETA [Suspect]
     Active Substance: AGALSIDASE BETA
     Dosage: 60 MG, QOW
     Route: 042
     Dates: start: 20180425
  4. COVID?19 VACCINE NOS. [Suspect]
     Active Substance: COVID-19 VACCINE NOS

REACTIONS (8)
  - Weight decreased [Unknown]
  - Anti-thyroid antibody positive [Unknown]
  - Pyrexia [Unknown]
  - Blood sodium decreased [Unknown]
  - Eating disorder [Recovering/Resolving]
  - Seizure [Unknown]
  - Epilepsy [Unknown]
  - Chills [Unknown]

NARRATIVE: CASE EVENT DATE: 202011
